FAERS Safety Report 8133595-5 (Version None)
Quarter: 2012Q1

REPORT INFORMATION
  Report Type: 
  Country: None (occurrence: None)
  Receive Date: 20120213
  Receipt Date: 20120208
  Transmission Date: 20120608
  Serious: Yes (Hospitalization, Other)
  Sender: FDA-Public Use
  Company Number: GR-AMGEN-GRCSP2011068016

PATIENT
  Age: 39 Year
  Sex: Male
  Weight: 150 kg

DRUGS (4)
  1. NPLATE [Suspect]
     Indication: AUTOIMMUNE THROMBOCYTOPENIA
     Dosage: 7 MUG/KG, QWK
     Route: 058
     Dates: start: 20090605, end: 20090717
  2. VALCYTE [Suspect]
     Indication: CYTOMEGALOVIRUS INFECTION
     Dosage: 900 UNIT, UNK
     Route: 048
     Dates: start: 20090626, end: 20090703
  3. MEDROL [Concomitant]
     Indication: IDIOPATHIC THROMBOCYTOPENIC PURPURA
     Dosage: 40 MG, UNK
     Route: 048
     Dates: start: 20090407, end: 20090710
  4. CYMEVEN                            /00784201/ [Suspect]
     Indication: CYTOMEGALOVIRUS INFECTION
     Dosage: 500 UNIT, UNK
     Route: 042
     Dates: start: 20090528, end: 20090623

REACTIONS (2)
  - DISEASE PROGRESSION [None]
  - DRUG INEFFECTIVE [None]
